FAERS Safety Report 7634741 (Version 6)
Quarter: 2020Q3

REPORT INFORMATION
  Report Type: Report from Study
  Country: JP (occurrence: JP)
  Receive Date: 20101020
  Receipt Date: 20110330
  Transmission Date: 20201105
  Serious: Yes (Hospitalization, Other)
  Sender: FDA-Public Use
  Company Number: PHHO2010JP15226

PATIENT
  Age: 42 Year
  Sex: Female
  Weight: 52 kg

DRUGS (5)
  1. FINGOLIMOD. [Suspect]
     Active Substance: FINGOLIMOD
     Indication: MULTIPLE SCLEROSIS
     Dosage: 0.5MG
     Route: 048
     Dates: start: 20081105, end: 20101004
  2. AMITRIPTYLINE HYDROCHLORIDE. [Concomitant]
     Active Substance: AMITRIPTYLINE HYDROCHLORIDE
  3. SENNA [Concomitant]
     Active Substance: SENNA LEAF\SENNOSIDES\SENNOSIDES A AND B
  4. FINGOLIMOD. [Suspect]
     Active Substance: FINGOLIMOD
     Indication: MULTIPLE SCLEROSIS
     Dosage: DOSE BLINDED
     Route: 048
     Dates: start: 20080512, end: 20081104
  5. BROTIZOLAM [Concomitant]
     Active Substance: BROTIZOLAM

REACTIONS (8)
  - Breast discomfort [Recovering/Resolving]
  - Chest pain [Recovered/Resolved]
  - Breast cancer [Recovering/Resolving]
  - Stress [Recovered/Resolved]
  - Breast mass [Recovering/Resolving]
  - Papilloma [Recovering/Resolving]
  - Breast pain [Recovering/Resolving]
  - Neurosis [Recovered/Resolved]

NARRATIVE: CASE EVENT DATE: 20100901
